FAERS Safety Report 12722542 (Version 1)
Quarter: 2016Q3

REPORT INFORMATION
  Report Type: Spontaneous
  Country: DE (occurrence: DE)
  Receive Date: 20160907
  Receipt Date: 20160907
  Transmission Date: 20161109
  Serious: Yes (Other)
  Sender: FDA-Public Use
  Company Number: DE-TAKEDA-2016TUS015923

PATIENT
  Sex: Female

DRUGS (2)
  1. DIMENHYDRINATE / DIMENHYDRINATE [Concomitant]
     Indication: INSOMNIA
     Dosage: 50 MG, UNK
     Route: 065
  2. BRINTELLIX [Suspect]
     Active Substance: VORTIOXETINE HYDROBROMIDE
     Indication: DEPRESSION
     Dosage: 10 MG, UNK
     Route: 065
     Dates: start: 20150728, end: 20151014

REACTIONS (2)
  - Cerebellar infarction [Not Recovered/Not Resolved]
  - Vertebral artery dissection [Not Recovered/Not Resolved]

NARRATIVE: CASE EVENT DATE: 20151014
